FAERS Safety Report 8199739-4 (Version None)
Quarter: 2012Q1

REPORT INFORMATION
  Report Type: 
  Country: None (occurrence: None)
  Receive Date: 20120311
  Receipt Date: 20120301
  Transmission Date: 20120608
  Serious: Yes (Other)
  Sender: FDA-Public Use
  Company Number: PHFR2012GB001497

PATIENT
  Sex: Male

DRUGS (1)
  1. CLOZARIL [Suspect]
     Indication: SCHIZOPHRENIA
     Dates: start: 20030812

REACTIONS (4)
  - NEUTROPHIL COUNT INCREASED [None]
  - SCHIZOPHRENIA [None]
  - WHITE BLOOD CELL COUNT INCREASED [None]
  - INTENTIONAL SELF-INJURY [None]
